FAERS Safety Report 6048735-1 (Version None)
Quarter: 2009Q1

REPORT INFORMATION
  Report Type: 
  Country: None (occurrence: None)
  Receive Date: 20090123
  Receipt Date: 20090112
  Transmission Date: 20090719
  Serious: Yes (Death, Other)
  Sender: FDA-Public Use
  Company Number: US-ROCHE-608705

PATIENT
  Age: 42 Year
  Sex: Female

DRUGS (6)
  1. DIAZEPAM [Suspect]
     Indication: DRUG USE FOR UNKNOWN INDICATION
     Dosage: OVERDOSE
     Route: 048
  2. DIAZEPAM [Suspect]
     Dosage: ROUTE: INGESTION
     Route: 048
  3. NORTRIPTYLINE HCL [Suspect]
     Indication: DRUG USE FOR UNKNOWN INDICATION
     Dosage: OVERDOSE
     Route: 048
  4. NORTRIPTYLINE HCL [Suspect]
     Dosage: ROUTE: INGESTION
     Route: 048
  5. DIPHENHYDRAMINE HCL [Suspect]
     Indication: DRUG USE FOR UNKNOWN INDICATION
     Dosage: OVERDOSE
     Route: 048
  6. DIPHENHYDRAMINE HCL [Suspect]
     Dosage: ROUTE: INGESTION
     Route: 048

REACTIONS (3)
  - CARDIAC ARREST [None]
  - COMPLETED SUICIDE [None]
  - RESPIRATORY ARREST [None]
